FAERS Safety Report 5015243-6 (Version None)
Quarter: 2006Q2

REPORT INFORMATION
  Report Type: 
  Country: None (occurrence: None)
  Receive Date: 20060426
  Receipt Date: 20050920
  Transmission Date: 20061013
  Serious: No
  Sender: FDA-Public Use
  Company Number: US151145

PATIENT
  Age: 55 Year
  Sex: Female
  Weight: 91 kg

DRUGS (8)
  1. SENSIPAR [Suspect]
     Indication: HYPERPARATHYROIDISM SECONDARY
     Dosage: 30 MG, 1 IN 1 DAYS, PO
     Route: 048
     Dates: start: 20050803
  2. ATORVASTATIN CALCIUM [Concomitant]
  3. ASPIRIN [Concomitant]
  4. EPOGEN [Concomitant]
  5. ISOPHANE INSULIN [Concomitant]
  6. LABETALOL HCL [Concomitant]
  7. LANSOPRAZOLE [Concomitant]
  8. QUINAPRIL [Concomitant]

REACTIONS (1)
  - PARAESTHESIA [None]
